FAERS Safety Report 15398057 (Version 5)
Quarter: 2019Q1

REPORT INFORMATION
  Report Type: Spontaneous
  Country: US (occurrence: US)
  Receive Date: 20180918
  Receipt Date: 20190108
  Transmission Date: 20190417
  Serious: Yes (Other)
  Sender: FDA-Public Use
  Company Number: US-AMGEN-USASP2018128151

PATIENT
  Sex: Female
  Weight: 90.72 kg

DRUGS (6)
  1. ENBREL [Suspect]
     Active Substance: ETANERCEPT
     Dosage: UNK
     Route: 065
     Dates: start: 201610
  2. METHOTREXATE. [Concomitant]
     Active Substance: METHOTREXATE
     Indication: RHEUMATOID ARTHRITIS
     Dosage: 6 DF, QWK WHICH IS 15MG TOTAL
     Route: 048
     Dates: start: 20110321
  3. HUMIRA [Concomitant]
     Active Substance: ADALIMUMAB
  4. ENBREL [Suspect]
     Active Substance: ETANERCEPT
     Indication: RHEUMATOID ARTHRITIS
     Dosage: 50 MG, QWK
     Route: 058
     Dates: start: 20151006
  5. ENBREL [Suspect]
     Active Substance: ETANERCEPT
     Dosage: UNK
     Route: 065
     Dates: start: 201805, end: 20180905
  6. XELJANZ XR [Concomitant]
     Active Substance: TOFACITINIB CITRATE
     Dosage: 11 MG, QD
     Route: 048

REACTIONS (8)
  - Drug effect decreased [Unknown]
  - Musculoskeletal pain [Unknown]
  - Pneumonia bacterial [Unknown]
  - Immune system disorder [Unknown]
  - Oral bacterial infection [Unknown]
  - Drug hypersensitivity [Unknown]
  - Back pain [Unknown]
  - Drug intolerance [Unknown]

NARRATIVE: CASE EVENT DATE: 2018
